FAERS Safety Report 7478214-6 (Version None)
Quarter: 2011Q2

REPORT INFORMATION
  Report Type: 
  Country: None (occurrence: None)
  Receive Date: 20110513
  Receipt Date: 20110505
  Transmission Date: 20111010
  Serious: Yes (Hospitalization, Other)
  Sender: FDA-Public Use
  Company Number: PHHY2008GB31662

PATIENT
  Sex: Male

DRUGS (13)
  1. HYOSCINE [Concomitant]
     Dosage: 300UG/DAY
  2. MOVIPREP [Concomitant]
  3. MERCAPTOPURINE [Suspect]
     Dosage: 30 MG/DAY
  4. MERCAPTOPURINE [Suspect]
     Indication: CROHN'S DISEASE
     Dosage: 50 MG/DAY
  5. TRAMADOL HCL [Concomitant]
     Dosage: PRN
  6. MERCAPTOPURINE [Suspect]
     Dosage: 15 MG/DAY
  7. ACETAMINOPHEN [Concomitant]
     Dosage: PRN
  8. MIRTAZAPINE [Concomitant]
     Dosage: 30MG/DAY
  9. MIRTAZAPINE [Concomitant]
     Dosage: 15 MG DAY
  10. FYBOGEL [Concomitant]
  11. BUSCOPAN [Concomitant]
     Dosage: PRN
  12. CLOZARIL [Suspect]
     Indication: SCHIZOPHRENIA
     Dosage: 150 MG, DAILY
     Route: 048
     Dates: start: 20080131
  13. METHOTREXATE [Concomitant]
     Dosage: UNK

REACTIONS (9)
  - SMALL INTESTINAL OBSTRUCTION [None]
  - HEADACHE [None]
  - PSOAS ABSCESS [None]
  - RASH [None]
  - GENERAL PHYSICAL CONDITION ABNORMAL [None]
  - MENTAL DISORDER [None]
  - INFLUENZA LIKE ILLNESS [None]
  - DRY SKIN [None]
  - ABDOMINAL PAIN [None]
